FAERS Safety Report 15740200 (Version 4)
Quarter: 2019Q1

REPORT INFORMATION
  Report Type: Spontaneous
  Country: DE (occurrence: DE)
  Receive Date: 20181219
  Receipt Date: 20190214
  Transmission Date: 20190417
  Serious: No
  Sender: FDA-Public Use
  Company Number: DE-ALLERGAN-1857742US

PATIENT
  Age: 45 Year
  Sex: Male
  Weight: 112 kg

DRUGS (13)
  1. FLIXABI [Suspect]
     Active Substance: INFLIXIMAB
     Indication: CROHN^S DISEASE
     Dosage: 1100 MG, EVERY FOUR WEEKS
     Dates: start: 20181106, end: 20181106
  2. FOLSAN [Concomitant]
     Active Substance: FOLIC ACID
     Dosage: 5 MG, UNK
     Route: 048
  3. PREDNISOLONE. [Suspect]
     Active Substance: PREDNISOLONE
     Indication: CROHN^S DISEASE
     Dosage: 10 MG, QD
     Route: 065
     Dates: end: 20181113
  4. NOVALGIN [Concomitant]
     Dosage: AS NEEDED, HIGHEST DAILY DOSE 4,000 MG
  5. PANTOPRAZOLE [Concomitant]
     Active Substance: PANTOPRAZOLE
     Indication: GASTRIC DISORDER
     Dosage: 40 MG, QD
     Route: 048
  6. PREDNISOLONE. [Suspect]
     Active Substance: PREDNISOLONE
     Dosage: 5 MG, UNK
     Route: 048
  7. NO SUSPECT ALLERGAN PRODUCT [Suspect]
     Active Substance: UNSPECIFIED INGREDIENT
  8. METHOTREXATE. [Suspect]
     Active Substance: METHOTREXATE
     Indication: CROHN^S DISEASE
     Dosage: 15 MG, QD
     Route: 058
     Dates: end: 20181106
  9. FLIXABI [Suspect]
     Active Substance: INFLIXIMAB
     Dosage: 1100 MG,  EVERY FOUR WEEKS
     Dates: start: 20180831, end: 20181106
  10. PENTASA [Suspect]
     Active Substance: MESALAMINE
     Indication: CROHN^S DISEASE
     Dosage: 1000 MG, BID; (2-0-2)
     Route: 048
  11. NOVALGIN [Concomitant]
     Indication: PAIN
     Dosage: 500 MG, PRN
  12. FLIXABI [Suspect]
     Active Substance: INFLIXIMAB
     Dosage: 1100 MG,  EVERY FOUR WEEKS
     Dates: start: 20181008, end: 20181106
  13. REMERGIL SOLTAB [Concomitant]
     Active Substance: MIRTAZAPINE
     Indication: DEPRESSION
     Dosage: 30 MG, QD
     Route: 048

REACTIONS (1)
  - No adverse event [Unknown]
